FAERS Safety Report 5266241-9 (Version None)
Quarter: 2007Q1

REPORT INFORMATION
  Report Type: 
  Country: None (occurrence: None)
  Receive Date: 20070315
  Receipt Date: 20070313
  Transmission Date: 20070707
  Serious: Yes (Hospitalization)
  Sender: FDA-Public Use
  Company Number: FR-GLAXOSMITHKLINE-B0461695A

PATIENT
  Age: 63 Year
  Sex: Male

DRUGS (11)
  1. CEFUROXIME [Suspect]
     Indication: SINUSITIS
     Route: 048
     Dates: start: 20070118, end: 20070201
  2. ORELOX [Suspect]
     Indication: SINUSITIS
     Route: 048
     Dates: start: 20070219, end: 20070220
  3. MABTHERA [Concomitant]
  4. BACTRIM DS [Concomitant]
  5. SPECIAFOLDINE [Concomitant]
  6. CORTICOIDS [Concomitant]
     Indication: SINUSITIS
     Dates: start: 20070118
  7. PYOSTACINE [Concomitant]
     Indication: SINUSITIS
     Dates: start: 20070201
  8. DEXTROMETHORPHAN [Concomitant]
     Indication: SINUSITIS
     Dates: start: 20070201
  9. RHINOFLUIMUCIL [Concomitant]
     Indication: SINUSITIS
     Dates: start: 20070201
  10. THIOVALONE [Concomitant]
     Indication: SINUSITIS
     Dates: start: 20070201
  11. CIPROFLOXACIN [Concomitant]
     Indication: SINUSITIS
     Dates: start: 20070219

REACTIONS (3)
  - AGRANULOCYTOSIS [None]
  - COUGH [None]
  - PYREXIA [None]
